FAERS Safety Report 20367512 (Version 2)
Quarter: 2022Q1

REPORT INFORMATION
  Report Type: Spontaneous
  Country: US (occurrence: US)
  Receive Date: 20220124
  Receipt Date: 20220201
  Transmission Date: 20220423
  Serious: No
  Sender: FDA-Public Use
  Company Number: US-TEVA-2022-US-1996849

PATIENT
  Age: 30 Year
  Sex: Female

DRUGS (3)
  1. LORAZEPAM [Suspect]
     Active Substance: LORAZEPAM
     Indication: Anxiety
     Dosage: 1.5 MILLIGRAM DAILY; SINCE THREE YEARS
     Route: 065
     Dates: start: 2019
  2. LORAZEPAM [Suspect]
     Active Substance: LORAZEPAM
     Route: 065
     Dates: start: 20220106
  3. REMERON [Concomitant]
     Active Substance: MIRTAZAPINE

REACTIONS (5)
  - Hyperhidrosis [Unknown]
  - Drug ineffective [Unknown]
  - Illness [Recovered/Resolved]
  - Feeling abnormal [Not Recovered/Not Resolved]
  - Heart rate increased [Not Recovered/Not Resolved]

NARRATIVE: CASE EVENT DATE: 20190101
